FAERS Safety Report 9926887 (Version 1)
Quarter: 2014Q1

REPORT INFORMATION
  Report Type: Spontaneous
  Country: US (occurrence: US)
  Receive Date: 20140226
  Receipt Date: 20140226
  Transmission Date: 20141002
  Serious: No
  Sender: FDA-Public Use
  Company Number: US-AMGEN-USASP2013080805

PATIENT
  Age: 33 Year
  Sex: Female
  Weight: 97.51 kg

DRUGS (24)
  1. ENBREL [Suspect]
     Indication: PSORIATIC ARTHROPATHY
     Dosage: 50 MG, QWK
     Route: 058
     Dates: start: 20111201
  2. METHOTREXATE [Concomitant]
     Dosage: UNK
  3. ASPIRIN [Concomitant]
     Dosage: UNK
  4. ATENOLOL [Concomitant]
     Dosage: UNK
  5. ATROVENT [Concomitant]
     Dosage: UNK
  6. PREVACID [Concomitant]
     Dosage: UNK
  7. PHENERGAN                          /00033001/ [Concomitant]
     Dosage: UNK
  8. LIDODERM [Concomitant]
     Dosage: UNK
  9. LASIX                              /00032601/ [Concomitant]
     Dosage: UNK
  10. GABAPENTIN [Concomitant]
     Dosage: UNK
  11. FOLIC ACID [Concomitant]
     Dosage: UNK
  12. FLOVENT [Concomitant]
  13. SINGULAIR [Concomitant]
  14. ULTRACET [Concomitant]
  15. VITAMIN D                          /00107901/ [Concomitant]
  16. XANAX [Concomitant]
  17. ZYRTEC [Concomitant]
  18. AMBIEN [Concomitant]
  19. MUCINEX [Concomitant]
  20. PROVIGIL                           /01265601/ [Concomitant]
  21. FLEXERIL                           /00428402/ [Concomitant]
  22. RESTASIS [Concomitant]
  23. CALCIUM [Concomitant]
  24. MELOXICAM [Concomitant]

REACTIONS (1)
  - Injection site bruising [Not Recovered/Not Resolved]
